FAERS Safety Report 10014112 (Version 3)
Quarter: 2014Q3

REPORT INFORMATION
  Report Type: Report from Study
  Country: US (occurrence: US)
  Receive Date: 20140317
  Receipt Date: 20140919
  Transmission Date: 20150326
  Serious: Yes (Hospitalization)
  Sender: FDA-Public Use
  Company Number: US-BIOGENIDEC-2014BI022353

PATIENT
  Age: 66 Year
  Sex: Male

DRUGS (2)
  1. AVONEX [Suspect]
     Active Substance: INTERFERON BETA-1A
     Indication: MULTIPLE SCLEROSIS
     Route: 030
     Dates: start: 201405
  2. AVONEX [Suspect]
     Active Substance: INTERFERON BETA-1A
     Indication: MULTIPLE SCLEROSIS
     Route: 030

REACTIONS (9)
  - Injection site haemorrhage [Recovered/Resolved]
  - Headache [Recovered/Resolved]
  - Intervertebral disc disorder [Recovered/Resolved]
  - Spinal fusion surgery [Recovered/Resolved]
  - Intervertebral disc operation [Recovered/Resolved]
  - Spinal laminectomy [Recovered/Resolved]
  - Spinal corpectomy [Recovered/Resolved]
  - Influenza like illness [Recovered/Resolved]
  - Bone graft [Recovered/Resolved]

NARRATIVE: CASE EVENT DATE: 2008
